FAERS Safety Report 8966155 (Version 1)
Quarter: 2012Q4

REPORT INFORMATION
  Report Type: 
  Country: GB (occurrence: GB)
  Receive Date: 20121217
  Receipt Date: 20121217
  Transmission Date: 20130627
  Serious: Yes (Other)
  Sender: FDA-Public Use
  Company Number: GB-PFIZER INC-2012314486

PATIENT
  Age: 47 Year
  Sex: Female
  Weight: 59 kg

DRUGS (2)
  1. CHAMPIX [Suspect]
     Indication: SMOKING CESSATION THERAPY
     Dosage: 1 mg, UNK
     Route: 048
     Dates: start: 20121017, end: 20121128
  2. SIMVASTATIN [Concomitant]

REACTIONS (3)
  - Depressed mood [Recovering/Resolving]
  - Vomiting [Recovering/Resolving]
  - Tearfulness [Recovering/Resolving]
